FAERS Safety Report 13373910 (Version 2)
Quarter: 2017Q2

REPORT INFORMATION
  Report Type: Spontaneous
  Country: US (occurrence: US)
  Receive Date: 20170327
  Receipt Date: 20170620
  Transmission Date: 20170830
  Serious: Yes (Hospitalization)
  Sender: FDA-Public Use
  Company Number: US-PFIZER INC-2017130722

PATIENT
  Age: 89 Year
  Sex: Female

DRUGS (4)
  1. CIPROFLOXACIN. [Suspect]
     Active Substance: CIPROFLOXACIN
     Indication: INFECTION
     Dosage: 500 MG, UNK
  2. OXYBUTIN [Suspect]
     Active Substance: OXYBUTYNIN
     Indication: GENITO-PELVIC PAIN/PENETRATION DISORDER
  3. CIPROFLOXACIN. [Suspect]
     Active Substance: CIPROFLOXACIN
     Indication: URINARY TRACT INFECTION
     Dosage: 20 MG, 2X/DAY
     Dates: start: 201702
  4. OXYBUTIN [Suspect]
     Active Substance: OXYBUTYNIN
     Indication: BLOOD PRESSURE MEASUREMENT
     Dosage: 20 MG, 2X/DAY
     Dates: start: 201702

REACTIONS (2)
  - Pyrexia [Recovered/Resolved]
  - Hypertension [Recovered/Resolved]
